FAERS Safety Report 15466624 (Version 6)
Quarter: 2019Q2

REPORT INFORMATION
  Report Type: Report from Study
  Country: None (occurrence: US)
  Receive Date: 20181005
  Receipt Date: 20190614
  Transmission Date: 20190711
  Serious: Yes (Hospitalization, Other)
  Sender: FDA-Public Use
  Company Number: US-ABBVIE-18K-163-2468758-00

PATIENT
  Age: 57 Year
  Sex: Male

DRUGS (8)
  1. HUMIRA [Suspect]
     Active Substance: ADALIMUMAB
     Dosage: DAY 29
     Route: 058
     Dates: start: 20180803, end: 201808
  2. HUMIRA [Suspect]
     Active Substance: ADALIMUMAB
     Dosage: DAY 15
     Route: 058
     Dates: start: 20180720, end: 20180720
  3. HUMIRA [Suspect]
     Active Substance: ADALIMUMAB
     Indication: CROHN^S DISEASE
     Dosage: DAY 1
     Route: 058
     Dates: start: 20180706, end: 20180706
  4. PREDNISONE. [Concomitant]
     Active Substance: PREDNISONE
     Indication: PRODUCT USED FOR UNKNOWN INDICATION
  5. HUMIRA [Suspect]
     Active Substance: ADALIMUMAB
     Indication: CROHN^S DISEASE
     Route: 058
  6. METHOTREXATE. [Concomitant]
     Active Substance: METHOTREXATE
     Indication: PRODUCT USED FOR UNKNOWN INDICATION
  7. HUMIRA [Suspect]
     Active Substance: ADALIMUMAB
     Route: 058
  8. HUMIRA [Suspect]
     Active Substance: ADALIMUMAB
     Route: 058
     Dates: start: 20181002

REACTIONS (26)
  - Rotator cuff syndrome [Unknown]
  - Pancreas infection [Unknown]
  - Drug level decreased [Unknown]
  - Malaise [Unknown]
  - Cough [Unknown]
  - Insomnia [Unknown]
  - Malaise [Not Recovered/Not Resolved]
  - Injection site irritation [Unknown]
  - Rash papular [Unknown]
  - Therapeutic response shortened [Unknown]
  - Yellow skin [Recovered/Resolved]
  - Constipation [Not Recovered/Not Resolved]
  - Dry skin [Unknown]
  - Injection site pain [Unknown]
  - Diarrhoea [Unknown]
  - Frequent bowel movements [Recovering/Resolving]
  - Depressed mood [Recovering/Resolving]
  - Rectal haemorrhage [Not Recovered/Not Resolved]
  - Arthralgia [Unknown]
  - Abnormal faeces [Unknown]
  - Gastrointestinal motility disorder [Not Recovered/Not Resolved]
  - Osteoarthritis [Unknown]
  - Arthropathy [Not Recovered/Not Resolved]
  - Dyschezia [Unknown]
  - Crohn^s disease [Recovering/Resolving]
  - Abdominal pain upper [Unknown]

NARRATIVE: CASE EVENT DATE: 2018
